FAERS Safety Report 6858964-2 (Version None)
Quarter: 2010Q3

REPORT INFORMATION
  Report Type: 
  Country: None (occurrence: None)
  Receive Date: 20100719
  Receipt Date: 20080218
  Transmission Date: 20110219
  Serious: No
  Sender: FDA-Public Use
  Company Number: US-PFIZER INC-2008016076

PATIENT
  Sex: Male
  Weight: 113.6 kg

DRUGS (11)
  1. CHANTIX [Suspect]
     Dates: start: 20080101
  2. CELEXA [Concomitant]
  3. LIPITOR [Concomitant]
  4. TOPROL-XL [Concomitant]
  5. AVANDIA [Concomitant]
  6. MONOPRIL [Concomitant]
  7. GLUCOPHAGE [Concomitant]
  8. PLAVIX [Concomitant]
  9. ASPIRIN [Concomitant]
  10. XALATAN [Concomitant]
  11. NITROGLYCERIN [Concomitant]

REACTIONS (4)
  - ABNORMAL BEHAVIOUR [None]
  - DIARRHOEA [None]
  - NERVOUSNESS [None]
  - PERSONALITY CHANGE [None]
